FAERS Safety Report 24223556 (Version 1)
Quarter: 2024Q3

REPORT INFORMATION
  Report Type: Spontaneous
  Country: US (occurrence: None)
  Receive Date: 20240816
  Receipt Date: 20240816
  Transmission Date: 20241016
  Serious: Yes (Hospitalization)
  Sender: Public
  Company Number: None

PATIENT
  Age: 56 Year
  Sex: Female
  Weight: 84.6 kg

DRUGS (1)
  1. SYNTHROID [Suspect]
     Active Substance: LEVOTHYROXINE SODIUM

REACTIONS (3)
  - Hypersensitivity [None]
  - Tongue disorder [None]
  - Oral disorder [None]

NARRATIVE: CASE EVENT DATE: 20240812
